FAERS Safety Report 6901990-5 (Version None)
Quarter: 2010Q3

REPORT INFORMATION
  Report Type: 
  Country: None (occurrence: None)
  Receive Date: 20100803
  Receipt Date: 20080407
  Transmission Date: 20110219
  Serious: No
  Sender: FDA-Public Use
  Company Number: US-PFIZER INC-2008013599

PATIENT
  Sex: Female

DRUGS (1)
  1. LYRICA [Suspect]

REACTIONS (11)
  - ADVERSE EVENT [None]
  - ASTHMA [None]
  - BRONCHITIS [None]
  - CARDIAC FLUTTER [None]
  - COGNITIVE DISORDER [None]
  - COUGH [None]
  - EUPHORIC MOOD [None]
  - HEADACHE [None]
  - MUSCULOSKELETAL STIFFNESS [None]
  - PALPITATIONS [None]
  - WHEEZING [None]
